FAERS Safety Report 11779519 (Version 3)
Quarter: 2015Q4

REPORT INFORMATION
  Report Type: Spontaneous
  Country: GR (occurrence: GR)
  Receive Date: 20151125
  Receipt Date: 20151229
  Transmission Date: 20160304
  Serious: Yes (Hospitalization)
  Sender: FDA-Public Use
  Company Number: GR-ABBVIE-15P-066-1504180-00

PATIENT
  Age: 48 Year
  Sex: Male

DRUGS (2)
  1. EXVIERA [Suspect]
     Active Substance: DASABUVIR
     Indication: CHRONIC HEPATITIS C
     Route: 048
     Dates: end: 20151010
  2. VIEKIRAX [Suspect]
     Active Substance: OMBITASVIR\PARITAPREVIR\RITONAVIR
     Indication: CHRONIC HEPATITIS C
     Route: 048
     Dates: end: 20151010

REACTIONS (11)
  - White blood cell count decreased [Recovered/Resolved]
  - Abdominal pain [Recovering/Resolving]
  - Bacteraemia [Recovered/Resolved]
  - Ecchymosis [Recovering/Resolving]
  - Blood bilirubin increased [Recovering/Resolving]
  - Appendiceal abscess [Recovering/Resolving]
  - Pyrexia [Recovered/Resolved]
  - Hepatocellular carcinoma [Unknown]
  - Ascites [Recovering/Resolving]
  - Platelet count decreased [Recovered/Resolved]
  - Nodular regenerative hyperplasia [Unknown]

NARRATIVE: CASE EVENT DATE: 201511
